FAERS Safety Report 7182929-7 (Version None)
Quarter: 2010Q4

REPORT INFORMATION
  Report Type: 
  Country: None (occurrence: None)
  Receive Date: 20101209
  Receipt Date: 20101125
  Transmission Date: 20110411
  Serious: Yes (Other)
  Sender: FDA-Public Use
  Company Number: AU-004187

PATIENT
  Age: 70 Year
  Sex: Male

DRUGS (1)
  1. MINIRIN [Suspect]
     Indication: NOCTURIA
     Dosage: (NASAL)
     Route: 045

REACTIONS (1)
  - PERICARDIAL EFFUSION [None]
